FAERS Safety Report 23883127 (Version 1)
Quarter: 2024Q2

REPORT INFORMATION
  Report Type: Spontaneous
  Country: US (occurrence: US)
  Receive Date: 20240522
  Receipt Date: 20240522
  Transmission Date: 20240716
  Serious: No
  Sender: FDA-Public Use
  Company Number: US-GSKCCFUS-Case-02009873_AE-111559

PATIENT
  Sex: Male

DRUGS (1)
  1. ARNUITY ELLIPTA [Suspect]
     Active Substance: FLUTICASONE FUROATE
     Indication: Product used for unknown indication
     Dosage: 1 PUFF(S), BID(100MCG)
     Route: 055

REACTIONS (3)
  - Product administered to patient of inappropriate age [Unknown]
  - Extra dose administered [Unknown]
  - Wrong technique in device usage process [Unknown]
